FAERS Safety Report 9732734 (Version 1)
Quarter: 2013Q4

REPORT INFORMATION
  Report Type: Spontaneous
  Country: CA (occurrence: CA)
  Receive Date: 20131204
  Receipt Date: 20131204
  Transmission Date: 20140711
  Serious: Yes (Life-Threatening)
  Sender: FDA-Public Use
  Company Number: CA-GLAXOSMITHKLINE-A1051575A

PATIENT
  Sex: Male

DRUGS (6)
  1. VOTRIENT [Suspect]
     Indication: RENAL CANCER
     Dosage: 800MG PER DAY
     Route: 048
     Dates: start: 20120403
  2. ALLOPURINOL [Concomitant]
  3. ATORVASTATIN [Concomitant]
     Dosage: 40MG PER DAY
  4. RABEPRAZOLE [Concomitant]
  5. MEGESTROL [Concomitant]
  6. RAMIPRIL [Concomitant]

REACTIONS (3)
  - Haematochezia [Recovered/Resolved]
  - Gastric mucosal lesion [Unknown]
  - Therapeutic procedure [Unknown]
